FAERS Safety Report 8770928 (Version 3)
Quarter: 2014Q2

REPORT INFORMATION
  Report Type: Spontaneous
  Country: JP (occurrence: JP)
  Receive Date: 20120906
  Receipt Date: 20140611
  Transmission Date: 20141212
  Serious: Yes (Death)
  Sender: FDA-Public Use
  Company Number: PHHY2012JP066514

PATIENT
  Age: 87 Year
  Sex: Female

DRUGS (4)
  1. VOLTAREN [Suspect]
     Indication: BACK PAIN
     Dosage: 50 MG, UNK
     Route: 054
     Dates: end: 201109
  2. VOLTAREN [Suspect]
     Dosage: 50 G, PRN
  3. NAPROXEN [Suspect]
     Indication: BACK PAIN
     Dosage: 600 MG, PER DAY
     Route: 048
     Dates: end: 20110905
  4. MORPHINE [Suspect]
     Indication: BACK PAIN
     Dosage: 5 MG, PRN

REACTIONS (4)
  - Cardiac valve disease [Fatal]
  - Large intestinal ulcer [Fatal]
  - Abdominal pain [Fatal]
  - Haematochezia [Fatal]
